FAERS Safety Report 5889073-7 (Version None)
Quarter: 2008Q3

REPORT INFORMATION
  Report Type: 
  Country: None (occurrence: None)
  Receive Date: 20080919
  Receipt Date: 20080202
  Transmission Date: 20090109
  Serious: No
  Sender: FDA-Public Use
  Company Number: US-KINGPHARMUSA00001-K200800163

PATIENT

DRUGS (6)
  1. SONATA [Suspect]
     Indication: MIDDLE INSOMNIA
     Dosage: 2 DOSES ONLY IN JAN2008
     Route: 048
     Dates: start: 20080101, end: 20080101
  2. DOXEPIN HCL [Concomitant]
     Indication: DEPRESSION
     Dosage: 175 MG, QPM
  3. AMITRIPTYLINE HCL [Concomitant]
     Indication: DEPRESSION
     Dosage: 30 MG, QPM
  4. HYDROCHLOROTHIAZIDE [Concomitant]
     Indication: HYPERTENSION
     Dosage: UNK, TID
  5. ATENOLOL [Concomitant]
     Indication: HYPERTENSION
  6. PEPCID AC [Concomitant]
     Dosage: UNK, UNK

REACTIONS (4)
  - ANXIETY [None]
  - FEELING ABNORMAL [None]
  - HALLUCINATION, AUDITORY [None]
  - MIDDLE INSOMNIA [None]
